FAERS Safety Report 5088619-9 (Version None)
Quarter: 2006Q3

REPORT INFORMATION
  Report Type: 
  Country: None (occurrence: None)
  Receive Date: 20060825
  Receipt Date: 20060711
  Transmission Date: 20061208
  Serious: Yes (Death)
  Sender: FDA-Public Use
  Company Number: GB-AVENTIS-200617183GDDC

PATIENT
  Age: 62 Year
  Sex: Male
  Weight: 82 kg

DRUGS (6)
  1. DOCETAXEL [Suspect]
     Indication: PROSTATE CANCER METASTATIC
     Dosage: DOSE: UNK
     Route: 042
     Dates: start: 20060509, end: 20060620
  2. PREDNISOLONE [Suspect]
     Indication: PROSTATE CANCER METASTATIC
     Route: 048
     Dates: start: 20060511
  3. ZOLEDRONIC ACID [Suspect]
     Indication: PROSTATE CANCER METASTATIC
     Route: 042
     Dates: start: 20060509, end: 20060620
  4. CLOPIDOGREL [Concomitant]
  5. VALSARTAN [Concomitant]
  6. EZETIMIBE/SIMVASTATIN [Concomitant]
     Dosage: DOSE: 10/20

REACTIONS (1)
  - AORTIC ANEURYSM RUPTURE [None]
